FAERS Safety Report 8898433 (Version 1)
Quarter: 2012Q4

REPORT INFORMATION
  Report Type: 
  Country: US (occurrence: US)
  Receive Date: 20121108
  Receipt Date: 20121108
  Transmission Date: 20130627
  Serious: No
  Sender: FDA-Public Use
  Company Number: US-AMGEN-USASP2012024015

PATIENT
  Sex: Female

DRUGS (7)
  1. ENBREL [Suspect]
     Indication: PRODUCT USED FOR UNKNOWN INDICATION
     Dosage: 50 mg, qwk
     Route: 058
  2. VIIBRYD [Concomitant]
     Dosage: 20 mg, UNK
  3. GEODON                             /01487002/ [Concomitant]
     Dosage: 40 mg, UNK
  4. LEVOTHYROXIN [Concomitant]
     Dosage: 200 mug, UNK
  5. LITHIUM CARBONATE [Concomitant]
     Dosage: 150 mg, UNK
  6. AMITRIPTYLIN [Concomitant]
     Dosage: 25 mg, UNK
  7. DIAZEPAM [Concomitant]
     Dosage: 2 mg, UNK

REACTIONS (1)
  - Headache [Unknown]
